FAERS Safety Report 10311927 (Version 1)
Quarter: 2014Q3

REPORT INFORMATION
  Report Type: Spontaneous
  Country: US (occurrence: US)
  Receive Date: 20140717
  Receipt Date: 20140717
  Transmission Date: 20150326
  Serious: No
  Sender: FDA-Public Use
  Company Number: US-FRI-1000069095

PATIENT
  Age: 30 Year
  Sex: Female
  Weight: 58.97 kg

DRUGS (4)
  1. CELEXA [Concomitant]
     Active Substance: CITALOPRAM HYDROBROMIDE
     Dosage: 20 MG
  2. LAMICTAL [Suspect]
     Active Substance: LAMOTRIGINE
     Dosage: 150 MG
  3. SAPHRIS [Suspect]
     Active Substance: ASENAPINE MALEATE
     Indication: BIPOLAR I DISORDER
     Dosage: 5 MG
     Route: 060
     Dates: start: 20130105, end: 20130108
  4. SAPHRIS [Suspect]
     Active Substance: ASENAPINE MALEATE
     Indication: BIPOLAR I DISORDER
     Dosage: 5 MG
     Route: 060
     Dates: start: 20121015, end: 20121025

REACTIONS (4)
  - Increased appetite [Unknown]
  - Hypomania [Unknown]
  - Suicidal ideation [Unknown]
  - Mania [Unknown]

NARRATIVE: CASE EVENT DATE: 201210
